FAERS Safety Report 9449153 (Version 2)
Quarter: 2013Q3

REPORT INFORMATION
  Report Type: Spontaneous
  Country: US (occurrence: US)
  Receive Date: 20130808
  Receipt Date: 20130909
  Transmission Date: 20140515
  Serious: Yes (Other)
  Sender: FDA-Public Use
  Company Number: US-TEVA-424640USA

PATIENT
  Age: 27 Year
  Sex: Female
  Weight: 109.87 kg

DRUGS (4)
  1. PARAGARD 380A [Suspect]
     Indication: CONTRACEPTION
     Route: 015
     Dates: start: 20090204
  2. IBUPROFEN [Concomitant]
     Indication: PAIN
     Dosage: PRN
     Route: 048
  3. ADVAIR [Concomitant]
     Indication: ASTHMA
     Dosage: 500 MICROGRAM DAILY;
  4. ALBUTEROL [Concomitant]
     Indication: ASTHMA
     Dosage: 15 MILLIGRAM DAILY;

REACTIONS (4)
  - Device dislocation [Not Recovered/Not Resolved]
  - Menorrhagia [Not Recovered/Not Resolved]
  - Menorrhagia [Not Recovered/Not Resolved]
  - Metrorrhagia [Unknown]
